FAERS Safety Report 8224982-5 (Version None)
Quarter: 2012Q1

REPORT INFORMATION
  Report Type: 
  Country: None (occurrence: None)
  Receive Date: 20120319
  Receipt Date: 20120306
  Transmission Date: 20120608
  Serious: Yes (Other)
  Sender: FDA-Public Use
  Company Number: 7118017

PATIENT
  Age: 53 Year
  Sex: Female

DRUGS (2)
  1. PURAN T4 (LEVOTHYROXINE SODIUM) [Concomitant]
  2. LEVOTHYROXINE SODIUM [Suspect]
     Indication: HYPOTHYROIDISM
     Dosage: (75 MCG) ; 50 MCG (50 MCG,1 IN 1 D)
     Dates: start: 20110101

REACTIONS (16)
  - INSOMNIA [None]
  - PAIN [None]
  - ABDOMINAL PAIN UPPER [None]
  - HEADACHE [None]
  - INCREASED UPPER AIRWAY SECRETION [None]
  - DRUG DOSE OMISSION [None]
  - SOMNOLENCE [None]
  - MALAISE [None]
  - TACHYCARDIA [None]
  - DRUG HYPERSENSITIVITY [None]
  - BACK PAIN [None]
  - TONSILLITIS [None]
  - WRONG TECHNIQUE IN DRUG USAGE PROCESS [None]
  - HELICOBACTER INFECTION [None]
  - SENSATION OF HEAVINESS [None]
  - BREAST PAIN [None]
